FAERS Safety Report 19396896 (Version 1)
Quarter: 2021Q2

REPORT INFORMATION
  Report Type: Spontaneous
  Country: JP (occurrence: JP)
  Receive Date: 20210609
  Receipt Date: 20210609
  Transmission Date: 20210717
  Serious: Yes (Hospitalization, Other)
  Sender: FDA-Public Use
  Company Number: JP-FERRINGPH-2021FE03564

PATIENT
  Age: 94 Year
  Sex: Female

DRUGS (4)
  1. ASPARA K [Concomitant]
     Active Substance: POTASSIUM ASPARTATE
     Route: 065
  2. FRANDOL [Concomitant]
     Active Substance: ISOSORBIDE DINITRATE
     Route: 065
  3. MINIRINMELT [Suspect]
     Active Substance: DESMOPRESSIN ACETATE
     Indication: DIABETES INSIPIDUS
     Dosage: DAILY
     Route: 048
  4. CORTRIL [Concomitant]
     Active Substance: HYDROCORTISONE
     Route: 065

REACTIONS (5)
  - Product use complaint [Unknown]
  - Somnolence [Unknown]
  - Hyponatraemia [Unknown]
  - Altered state of consciousness [Unknown]
  - Hypernatraemia [Unknown]

NARRATIVE: CASE EVENT DATE: 2021
